FAERS Safety Report 17814976 (Version 1)
Quarter: 2020Q2

REPORT INFORMATION
  Report Type: Spontaneous
  Country: GR (occurrence: GR)
  Receive Date: 20200522
  Receipt Date: 20200522
  Transmission Date: 20200714
  Serious: Yes (Hospitalization, Other)
  Sender: FDA-Public Use
  Company Number: GR-009507513-2003GRC011172

PATIENT
  Age: 76 Year
  Sex: Male

DRUGS (6)
  1. LIPITOR [Concomitant]
     Active Substance: ATORVASTATIN CALCIUM
     Dosage: UNK
  2. CATAPRES [Concomitant]
     Active Substance: CLONIDINE HYDROCHLORIDE
     Indication: HYPERTENSION
     Dosage: UNK
  3. KEYTRUDA [Suspect]
     Active Substance: PEMBROLIZUMAB
     Indication: LUNG ADENOCARCINOMA
     Dosage: 200 MILLIGRAM, CYCLICAL (1 CYCLE COMBINATION OF PEMBROLIZUMAB + CARBOPLATIN + PEMETREXED)
     Dates: start: 20200316, end: 2020
  4. CARBOPLATIN. [Suspect]
     Active Substance: CARBOPLATIN
     Indication: LUNG ADENOCARCINOMA
     Dosage: 4 CHEMOTHERAPY CYCLES
  5. FILICINE [Concomitant]
     Dosage: UNK
  6. PEMETREXED DISODIUM [Suspect]
     Active Substance: PEMETREXED DISODIUM
     Dosage: 1 CYCLE COMBINATION OF PEMBROLIZUMAB + CARBOPLATIN + PEMETREXED
     Dates: start: 20200316

REACTIONS (3)
  - Autoimmune haemolytic anaemia [Recovering/Resolving]
  - Acute kidney injury [Unknown]
  - Diabetes mellitus [Unknown]

NARRATIVE: CASE EVENT DATE: 2020
